FAERS Safety Report 7278200-5 (Version None)
Quarter: 2011Q1

REPORT INFORMATION
  Report Type: 
  Country: None (occurrence: None)
  Receive Date: 20110207
  Receipt Date: 20110131
  Transmission Date: 20110831
  Serious: Yes (Other)
  Sender: FDA-Public Use
  Company Number: B0697834A

PATIENT
  Age: 10 Year
  Sex: Female

DRUGS (2)
  1. RELENZA [Suspect]
     Indication: INFLUENZA
     Route: 055
  2. CALONAL [Concomitant]
     Route: 065

REACTIONS (3)
  - DELIRIUM [None]
  - NIGHTMARE [None]
  - SLEEP TALKING [None]
